FAERS Safety Report 8205659-9 (Version None)
Quarter: 2012Q1

REPORT INFORMATION
  Report Type: 
  Country: None (occurrence: None)
  Receive Date: 20120313
  Receipt Date: 20120229
  Transmission Date: 20120608
  Serious: No
  Sender: FDA-Public Use
  Company Number: US-B.I. PHARMACEUTICALS,INC./RIDGEFIELD-2012-BP-03893BP

PATIENT
  Sex: Female

DRUGS (11)
  1. BYSTOLIC [Concomitant]
     Dosage: 20 MG
     Route: 048
  2. XYZAL [Concomitant]
     Indication: HYPERSENSITIVITY
     Dosage: 5 MG
     Route: 048
  3. NITROSTAT [Concomitant]
  4. FORTICAL [Concomitant]
  5. SIMVASTATIN [Concomitant]
     Dosage: 20 MG
     Route: 048
  6. SPIRIVA [Suspect]
     Indication: CHRONIC OBSTRUCTIVE PULMONARY DISEASE
     Dosage: 18 MCG
     Route: 055
     Dates: start: 20120216
  7. HYZAAR [Concomitant]
     Dosage: 50 MG
     Route: 048
  8. ADVAIR DISKUS 100/50 [Concomitant]
  9. RHINOCORT [Concomitant]
  10. RANITIDINE [Concomitant]
     Dosage: 300 MG
     Route: 048
  11. ASPIRIN [Concomitant]
     Dosage: 81 MG
     Route: 048

REACTIONS (2)
  - OCULAR HYPERAEMIA [None]
  - CONSTIPATION [None]
